FAERS Safety Report 8300485-4 (Version None)
Quarter: 2012Q2

REPORT INFORMATION
  Report Type: 
  Country: None (occurrence: None)
  Receive Date: 20120417
  Receipt Date: 20120404
  Transmission Date: 20120825
  Serious: Yes (Death, Hospitalization, Other)
  Sender: FDA-Public Use
  Company Number: 2009AL001697

PATIENT
  Age: 77 Year
  Sex: Female
  Weight: 54.4316 kg

DRUGS (36)
  1. TOPROL-XL [Concomitant]
  2. AVAPRO [Concomitant]
  3. PREVACID [Concomitant]
  4. HEPARIN [Concomitant]
  5. PRILOSEC [Concomitant]
  6. AEROCHAMBER PLUS [Concomitant]
  7. SYNTHROID [Concomitant]
  8. TAMOXIFEN CITRATE [Concomitant]
  9. REMERON [Concomitant]
  10. METHIMAZOLE [Concomitant]
  11. DIGOXIN [Suspect]
     Indication: ATRIAL FIBRILLATION
     Dosage: 0.125 MG;QD;PO
     Route: 048
     Dates: start: 20010712, end: 20090101
  12. COMBIVENT [Concomitant]
  13. ZAROXOLYN [Concomitant]
  14. LISINOPRIL [Concomitant]
  15. MEDROL [Concomitant]
  16. FUROSEMIDE [Concomitant]
  17. CORGARD [Concomitant]
  18. POTASSIUM CHLORIDE [Concomitant]
  19. PROCARDIA [Concomitant]
  20. NADOLOL [Concomitant]
  21. NIFEDIPINE [Concomitant]
  22. TAPAZOLE [Concomitant]
  23. COREG [Concomitant]
  24. ALLOPURINOL [Concomitant]
  25. ENABLEX [Concomitant]
  26. LEVAQUIN [Concomitant]
  27. COUMADIN [Concomitant]
  28. GLUCOVANCE [Concomitant]
  29. NITROGLYCERIN [Concomitant]
  30. GLUCOPHAGE [Concomitant]
  31. ARIMIDEX [Concomitant]
  32. NADOLOL [Concomitant]
  33. VIOXX [Concomitant]
  34. SPIRONOLACTONE [Concomitant]
  35. NORVASC [Concomitant]
  36. LASIX [Concomitant]

REACTIONS (76)
  - CONFUSIONAL STATE [None]
  - PAIN [None]
  - UNEVALUABLE EVENT [None]
  - POOR QUALITY DRUG ADMINISTERED [None]
  - FATIGUE [None]
  - BLOOD ALKALINE PHOSPHATASE INCREASED [None]
  - BLOOD GLUCOSE INCREASED [None]
  - KYPHOSIS [None]
  - PROGESTERONE RECEPTOR ASSAY POSITIVE [None]
  - FAMILY STRESS [None]
  - CARDIOMYOPATHY [None]
  - DYSPNOEA PAROXYSMAL NOCTURNAL [None]
  - ORTHOPNOEA [None]
  - TREMOR [None]
  - VASCULAR PSEUDOANEURYSM [None]
  - URINARY TRACT INFECTION [None]
  - SPINAL OSTEOARTHRITIS [None]
  - CARDIAC MURMUR [None]
  - CARDIAC FAILURE CONGESTIVE [None]
  - EYES SUNKEN [None]
  - CORNEAL DYSTROPHY [None]
  - AORTIC VALVE INCOMPETENCE [None]
  - ECCHYMOSIS [None]
  - PULMONARY HYPERTENSION [None]
  - APHASIA [None]
  - ATRIAL FIBRILLATION [None]
  - CEREBRAL INFARCTION [None]
  - VENTRICULAR HYPERTROPHY [None]
  - INSOMNIA [None]
  - EXERCISE TOLERANCE DECREASED [None]
  - GOITRE [None]
  - GLYCOSYLATED HAEMOGLOBIN INCREASED [None]
  - ARCUS LIPOIDES [None]
  - DYSSTASIA [None]
  - CACHEXIA [None]
  - DEPRESSION [None]
  - WEIGHT DECREASED [None]
  - HYPERHIDROSIS [None]
  - CARDIOMEGALY [None]
  - CONGESTIVE CARDIOMYOPATHY [None]
  - CATARACT [None]
  - NASAL OEDEMA [None]
  - MALAISE [None]
  - CEREBROVASCULAR ACCIDENT [None]
  - MITRAL VALVE INCOMPETENCE [None]
  - ANXIETY [None]
  - POLLAKIURIA [None]
  - ACTIVITIES OF DAILY LIVING IMPAIRED [None]
  - COGNITIVE DISORDER [None]
  - EPISTAXIS [None]
  - NASAL POLYPS [None]
  - DISORIENTATION [None]
  - ECONOMIC PROBLEM [None]
  - PRODUCT PACKAGING QUANTITY ISSUE [None]
  - EMOTIONAL DISORDER [None]
  - URINARY INCONTINENCE [None]
  - MEMORY IMPAIRMENT [None]
  - FACIAL WASTING [None]
  - UPPER-AIRWAY COUGH SYNDROME [None]
  - HYPERTENSION [None]
  - GAIT DISTURBANCE [None]
  - STRESS [None]
  - PRODUCTIVE COUGH [None]
  - TEMPERATURE INTOLERANCE [None]
  - RENAL FAILURE ACUTE [None]
  - ARTERIAL REPAIR [None]
  - DECREASED APPETITE [None]
  - TRANSIENT ISCHAEMIC ATTACK [None]
  - MOBILITY DECREASED [None]
  - SYSTOLIC DYSFUNCTION [None]
  - BREAST CANCER FEMALE [None]
  - DIZZINESS [None]
  - HYPERTHYROIDISM [None]
  - RESPIRATORY DISTRESS [None]
  - OESTROGEN RECEPTOR ASSAY POSITIVE [None]
  - ABASIA [None]
